FAERS Safety Report 9282287 (Version 2)
Quarter: 2013Q2

REPORT INFORMATION
  Report Type: Spontaneous
  Country: US (occurrence: US)
  Receive Date: 20130510
  Receipt Date: 20130522
  Transmission Date: 20140414
  Serious: No
  Sender: FDA-Public Use
  Company Number: US-PFIZER INC-2013143092

PATIENT
  Age: 48 Year
  Sex: Female

DRUGS (7)
  1. LODINE [Suspect]
     Dosage: UNK
  2. METHOCARBAMOL [Suspect]
     Dosage: UNK
  3. ALDACTONE [Suspect]
     Dosage: UNK
  4. AMOXICILLIN [Suspect]
     Dosage: UNK
  5. ACETAZOLAMIDE [Suspect]
     Dosage: UNK
  6. TETANUS TOXOID [Suspect]
     Dosage: UNK
  7. VOLTAREN [Suspect]
     Dosage: UNK

REACTIONS (1)
  - Drug hypersensitivity [Unknown]
